FAERS Safety Report 5006371-X (Version None)
Quarter: 2006Q2

REPORT INFORMATION
  Report Type: 
  Country: None (occurrence: None)
  Receive Date: 20060519
  Receipt Date: 20060510
  Transmission Date: 20061013
  Serious: Yes (Hospitalization, Other)
  Sender: FDA-Public Use
  Company Number: PHBS2006US06989

PATIENT
  Age: 38 Year
  Sex: Female

DRUGS (6)
  1. CLOZAPINE [Suspect]
     Dosage: 350 MG/D
     Route: 065
     Dates: start: 19960101
  2. VALPROATE SODIUM [Concomitant]
     Dosage: 2400 MG/D
     Route: 065
  3. BENZHEXOL [Concomitant]
     Dosage: 6 MG/D
     Route: 065
  4. LORAZEPAM [Concomitant]
     Dosage: 3 MG/D
     Route: 065
  5. SULPIRIDE [Concomitant]
     Dosage: 100 MG/D
     Route: 065
  6. FLUVOXAMINE MALEATE [Concomitant]
     Dosage: 25 MG/D
     Route: 065

REACTIONS (9)
  - ABDOMINAL DISTENSION [None]
  - CLOSTRIDIUM COLITIS [None]
  - COLITIS [None]
  - DIARRHOEA [None]
  - GRAND MAL CONVULSION [None]
  - HYPOTENSION [None]
  - ILEUS [None]
  - INTESTINAL ANASTOMOSIS [None]
  - MUCOSAL EROSION [None]
